FAERS Safety Report 25478129 (Version 1)
Quarter: 2025Q2

REPORT INFORMATION
  Report Type: Other
  Country: TZ (occurrence: TZ)
  Receive Date: 20250625
  Receipt Date: 20250625
  Transmission Date: 20250716
  Serious: Yes (Death, Hospitalization)
  Sender: ANI
  Company Number: TZ-ANIPHARMA-023260

PATIENT
  Age: 37 Year
  Sex: Female

DRUGS (5)
  1. TRANEXAMIC ACID [Suspect]
     Active Substance: TRANEXAMIC ACID
     Indication: Product used for unknown indication
     Route: 037
  2. PHENYTOIN [Suspect]
     Active Substance: PHENYTOIN
     Indication: Generalised tonic-clonic seizure
  3. PROPOFOL [Concomitant]
     Active Substance: PROPOFOL
     Indication: General anaesthesia
  4. MEPERIDINE [Concomitant]
     Active Substance: MEPERIDINE
     Indication: General anaesthesia
  5. SUCCINYLCHOLINE CHLORIDE [Concomitant]
     Active Substance: SUCCINYLCHOLINE CHLORIDE
     Indication: General anaesthesia

REACTIONS (3)
  - Accidental exposure to product [Fatal]
  - Drug ineffective [Unknown]
  - Maternal exposure during delivery [Unknown]
